FAERS Safety Report 20410089 (Version 7)
Quarter: 2022Q3

REPORT INFORMATION
  Report Type: Report from Study
  Country: US (occurrence: US)
  Receive Date: 20220201
  Receipt Date: 20220822
  Transmission Date: 20221027
  Serious: No
  Sender: FDA-Public Use
  Company Number: US-KYOWAKIRIN-2022BKK000640

PATIENT

DRUGS (2)
  1. MOGAMULIZUMAB [Suspect]
     Active Substance: MOGAMULIZUMAB
     Indication: Cutaneous T-cell lymphoma
     Dosage: UNK
     Route: 042
     Dates: start: 20211118
  2. MOGAMULIZUMAB [Suspect]
     Active Substance: MOGAMULIZUMAB
     Dosage: UNK
     Route: 042

REACTIONS (13)
  - Platelet count decreased [Unknown]
  - Pruritus [Unknown]
  - Fatigue [Unknown]
  - Haemoglobin decreased [Unknown]
  - Alopecia [Unknown]
  - Skin lesion [Not Recovered/Not Resolved]
  - Ear disorder [Unknown]
  - Hair texture abnormal [Unknown]
  - Photopheresis [Unknown]
  - COVID-19 [Unknown]
  - Pain [Recovering/Resolving]
  - Skin tightness [Unknown]
  - Laboratory test abnormal [Unknown]
